FAERS Safety Report 7446139-8 (Version None)
Quarter: 2011Q2

REPORT INFORMATION
  Report Type: 
  Country: None (occurrence: None)
  Receive Date: 20110429
  Receipt Date: 20110420
  Transmission Date: 20111010
  Serious: Yes (Hospitalization)
  Sender: FDA-Public Use
  Company Number: B0707053B

PATIENT
  Sex: Female
  Weight: 99 kg

DRUGS (6)
  1. IBUPROFEN [Concomitant]
     Indication: PAIN
     Dosage: 600MG THREE TIMES PER DAY
     Route: 048
     Dates: start: 20110311
  2. HYCAMTIN [Suspect]
     Dosage: 3.5MG WEEKLY
     Route: 042
     Dates: start: 20110210
  3. PACLITAXEL [Suspect]
     Dosage: 140MG WEEKLY
     Route: 042
     Dates: start: 20110210
  4. NOVALGIN [Concomitant]
     Indication: PAIN
     Dosage: 500MG FOUR TIMES PER DAY
     Route: 048
     Dates: start: 20110311
  5. CAPTOPRIL [Concomitant]
     Indication: HYPERTENSION
     Dosage: 50MG TWICE PER DAY
     Route: 048
     Dates: start: 20110311
  6. TRAMAL [Concomitant]
     Indication: PAIN
     Dosage: 100MG TWICE PER DAY
     Route: 048
     Dates: start: 20110415

REACTIONS (1)
  - GENERAL PHYSICAL HEALTH DETERIORATION [None]
